FAERS Safety Report 6235680-1 (Version None)
Quarter: 2009Q2

REPORT INFORMATION
  Report Type: 
  Country: None (occurrence: None)
  Receive Date: 20090616
  Receipt Date: 20090609
  Transmission Date: 20091009
  Serious: Yes (Hospitalization, Other)
  Sender: FDA-Public Use
  Company Number: SPV1-2009-01188

PATIENT
  Age: 79 Year
  Sex: Female
  Weight: 104.3 kg

DRUGS (4)
  1. FOSRENOL [Suspect]
     Indication: RENAL DISORDER
     Dosage: 1000 MG
     Dates: start: 20080101
  2. CLONIDINE [Concomitant]
  3. ALBUTEROL [Concomitant]
  4. ALBUTEROL [Concomitant]

REACTIONS (5)
  - CARDIOMEGALY [None]
  - COUGH [None]
  - GASTROOESOPHAGEAL REFLUX DISEASE [None]
  - HEADACHE [None]
  - PLEURAL EFFUSION [None]
